FAERS Safety Report 20422557 (Version 1)
Quarter: 2022Q1

REPORT INFORMATION
  Report Type: Spontaneous
  Country: US (occurrence: US)
  Receive Date: 20220203
  Receipt Date: 20220203
  Transmission Date: 20220423
  Serious: No
  Sender: FDA-Public Use
  Company Number: US-LUPIN PHARMACEUTICALS INC.-2022-01326

PATIENT
  Age: 66 Year
  Sex: Male

DRUGS (19)
  1. TRAMADOL [Suspect]
     Active Substance: TRAMADOL
     Indication: Drug withdrawal syndrome
     Dosage: UNK
     Route: 065
  2. TRAMADOL [Suspect]
     Active Substance: TRAMADOL
     Indication: Pain
  3. HYDROMORPHONE [Suspect]
     Active Substance: HYDROMORPHONE
     Indication: Analgesic therapy
     Dosage: UNK, A PATIENT-CONTROLLED ANALGESIA
     Route: 048
  4. HYDROMORPHONE [Suspect]
     Active Substance: HYDROMORPHONE
     Indication: Pain
     Dosage: FOR 7 DAYS, WITH INSTRUCTIONS TO TAPER
     Route: 048
  5. METHADONE [Suspect]
     Active Substance: METHADONE HYDROCHLORIDE
     Indication: Analgesic therapy
     Dosage: UNK
     Route: 065
  6. METHADONE [Suspect]
     Active Substance: METHADONE HYDROCHLORIDE
     Indication: Pain
  7. FENTANYL [Suspect]
     Active Substance: FENTANYL
     Indication: Analgesic therapy
     Dosage: UNK
     Route: 042
  8. FENTANYL [Suspect]
     Active Substance: FENTANYL
     Indication: Pain
  9. KETAMINE [Suspect]
     Active Substance: KETAMINE
     Indication: Analgesic therapy
     Dosage: UNK
     Route: 065
  10. KETAMINE [Suspect]
     Active Substance: KETAMINE
     Indication: Pain
  11. ACETAMINOPHEN [Suspect]
     Active Substance: ACETAMINOPHEN
     Indication: Analgesic therapy
     Dosage: UNK
     Route: 065
  12. ACETAMINOPHEN [Suspect]
     Active Substance: ACETAMINOPHEN
     Indication: Pain
     Dosage: UNK
     Route: 065
  13. KETOROLAC [Suspect]
     Active Substance: KETOROLAC TROMETHAMINE
     Indication: Analgesic therapy
     Dosage: UNK
     Route: 042
  14. KETOROLAC [Suspect]
     Active Substance: KETOROLAC TROMETHAMINE
     Indication: Pain
  15. BUPRENORPHINE [Suspect]
     Active Substance: BUPRENORPHINE
     Indication: Analgesic therapy
     Dosage: 24 MG, QD
     Route: 065
  16. BUPRENORPHINE [Suspect]
     Active Substance: BUPRENORPHINE
     Indication: Drug use disorder
  17. BUPRENORPHINE [Suspect]
     Active Substance: BUPRENORPHINE
     Indication: Pain
  18. IBUPROFEN [Suspect]
     Active Substance: IBUPROFEN
     Indication: Analgesic therapy
     Dosage: UNK
     Route: 065
  19. IBUPROFEN [Suspect]
     Active Substance: IBUPROFEN
     Indication: Pain

REACTIONS (2)
  - Intentional overdose [Unknown]
  - Intentional product misuse [Unknown]
